FAERS Safety Report 4691400-3 (Version None)
Quarter: 2005Q2

REPORT INFORMATION
  Report Type: 
  Country: None (occurrence: None)
  Receive Date: 20050615
  Receipt Date: 20050604
  Transmission Date: 20051028
  Serious: Yes (Hospitalization)
  Sender: FDA-Public Use
  Company Number: C05-C-102

PATIENT
  Sex: Male

DRUGS (1)
  1. LITHIUM CARBONATE CAP [Suspect]
     Indication: BIPOLAR DISORDER
     Dosage: 300 MG, AM, 600 MG PM
     Dates: start: 20040901, end: 20050501

REACTIONS (4)
  - DEPRESSION [None]
  - MOOD ALTERED [None]
  - SLUGGISHNESS [None]
  - THERAPY NON-RESPONDER [None]
